FAERS Safety Report 5319558-3 (Version None)
Quarter: 2007Q2

REPORT INFORMATION
  Report Type: 
  Country: None (occurrence: None)
  Receive Date: 20070508
  Receipt Date: 20070430
  Transmission Date: 20071010
  Serious: Yes (Hospitalization)
  Sender: FDA-Public Use
  Company Number: US-ELI_LILLY_AND_COMPANY-US200704006622

PATIENT
  Age: 86 Year
  Sex: Female

DRUGS (10)
  1. FORTEO [Suspect]
     Dates: start: 20060901
  2. CRESTOR [Concomitant]
  3. DEMADEX [Concomitant]
  4. ASPIRIN [Concomitant]
  5. FERROUS SULFATE TAB [Concomitant]
  6. ALDACTONE [Concomitant]
  7. ATACAND [Concomitant]
  8. DETROL [Concomitant]
  9. TOPROL-XL [Concomitant]
  10. PROCRIT [Concomitant]
     Dosage: UNK, AS NEEDED

REACTIONS (3)
  - CARDIAC FAILURE [None]
  - DECUBITUS ULCER [None]
  - RENAL FAILURE [None]
